FAERS Safety Report 21604569 (Version 5)
Quarter: 2023Q1

REPORT INFORMATION
  Report Type: Report from Study
  Country: US (occurrence: US)
  Receive Date: 20221116
  Receipt Date: 20230315
  Transmission Date: 20230417
  Serious: Yes (Other)
  Sender: FDA-Public Use
  Company Number: US-ABBVIE-22K-163-4509111-00

PATIENT
  Age: 63 Year
  Sex: Female
  Weight: 92 kg

DRUGS (12)
  1. HUMIRA [Suspect]
     Active Substance: ADALIMUMAB
     Indication: Hidradenitis
     Dosage: CF FORM STRENGTH: 40 MG
     Route: 058
  2. HUMIRA [Suspect]
     Active Substance: ADALIMUMAB
     Dosage: CITRATE FREE?FORM STRENGTH: 40 MG
     Route: 058
  3. HUMIRA [Suspect]
     Active Substance: ADALIMUMAB
     Dosage: CITRATE FREE?FORM STRENGTH: 40 MG
     Route: 058
  4. HUMIRA [Suspect]
     Active Substance: ADALIMUMAB
     Dosage: CITRATE FREE?FORM STRENGTH: 40 MG
     Route: 058
  5. HUMIRA [Suspect]
     Active Substance: ADALIMUMAB
     Dosage: CITRATE FREE/?4 TH REGIMEN FIRST ADMIN DATE: 08 FEB 2023?FORM STRENGTH: 40 MG
     Route: 058
  6. PFIZER-BIONTECH COVID-19 VACCINE [Concomitant]
     Active Substance: TOZINAMERAN
     Indication: COVID-19 immunisation
     Route: 030
  7. PFIZER-BIONTECH COVID-19 VACCINE [Concomitant]
     Active Substance: TOZINAMERAN
     Indication: COVID-19 immunisation
     Dosage: BOOSTER DOSE
     Route: 030
  8. SYNTHROID [Concomitant]
     Active Substance: LEVOTHYROXINE SODIUM
     Indication: Product used for unknown indication
     Route: 048
  9. ATENOLOL [Concomitant]
     Active Substance: ATENOLOL
     Indication: Product used for unknown indication
     Dosage: 50/25 MG., 1/2 TAB
  10. METFORMIN HYDROCHLORIDE [Concomitant]
     Active Substance: METFORMIN HYDROCHLORIDE
     Indication: Product used for unknown indication
     Dosage: STRENGTH: 500 MG? 2 TABLETS WITH FOOD
  11. OLMESARTAN MEDOXOMIL [Concomitant]
     Active Substance: OLMESARTAN MEDOXOMIL
     Indication: Product used for unknown indication
  12. AMLODIPINE [Concomitant]
     Active Substance: AMLODIPINE BESYLATE
     Indication: Product used for unknown indication

REACTIONS (22)
  - Pulmonary arterial hypertension [Unknown]
  - Conjunctivitis [Unknown]
  - Illness anxiety disorder [Unknown]
  - Colitis ulcerative [Recovered/Resolved]
  - Hidradenitis [Recovered/Resolved]
  - Pallor [Recovered/Resolved]
  - Feeding disorder [Recovered/Resolved]
  - Drug ineffective [Recovered/Resolved]
  - Loss of personal independence in daily activities [Recovered/Resolved]
  - Cardiomegaly [Recovered/Resolved]
  - Vomiting [Recovered/Resolved]
  - Hyperkeratosis [Recovered/Resolved]
  - Pain [Recovered/Resolved]
  - Vitreous floaters [Unknown]
  - Coronary artery disease [Unknown]
  - Oxygen saturation decreased [Unknown]
  - Pain in extremity [Recovered/Resolved]
  - Adverse food reaction [Recovered/Resolved]
  - Asthma [Unknown]
  - Fear [Unknown]
  - Eye pruritus [Unknown]
  - Eye pain [Unknown]

NARRATIVE: CASE EVENT DATE: 20220816
